FAERS Safety Report 11072331 (Version 2)
Quarter: 2015Q2

REPORT INFORMATION
  Report Type: Spontaneous
  Country: US (occurrence: US)
  Receive Date: 20150428
  Receipt Date: 20150512
  Transmission Date: 20150821
  Serious: Yes (Other)
  Sender: FDA-Public Use
  Company Number: US-009507513-1504USA022226

PATIENT
  Age: 35 Year
  Sex: Male

DRUGS (1)
  1. PROPECIA [Suspect]
     Active Substance: FINASTERIDE
     Dosage: UNK
     Route: 048

REACTIONS (4)
  - Brain injury [Unknown]
  - Suicidal ideation [Unknown]
  - Metabolic disorder [Unknown]
  - Hormone level abnormal [Unknown]
